FAERS Safety Report 11091430 (Version 2)
Quarter: 2015Q3

REPORT INFORMATION
  Report Type: Spontaneous
  Country: DE (occurrence: DE)
  Receive Date: 20150505
  Receipt Date: 20150805
  Transmission Date: 20151125
  Serious: Yes (Death, Life-Threatening, Hospitalization)
  Sender: FDA-Public Use
  Company Number: GXKR2015DE002242

PATIENT

DRUGS (1)
  1. CEFUROXIME. [Suspect]
     Active Substance: CEFUROXIME
     Indication: ANTIBIOTIC PROPHYLAXIS
     Dosage: DAILY DOSE: 0.5 G GRAM(S) EVERY TOTAL
     Route: 041
     Dates: start: 20150331

REACTIONS (4)
  - Anaphylactic reaction [Fatal]
  - Bronchospasm [Fatal]
  - Cardiac arrest [Fatal]
  - Brain injury [Fatal]

NARRATIVE: CASE EVENT DATE: 20150331
